FAERS Safety Report 16269426 (Version 1)
Quarter: 2019Q2

REPORT INFORMATION
  Report Type: Spontaneous
  Country: CA (occurrence: CA)
  Receive Date: 20190503
  Receipt Date: 20190503
  Transmission Date: 20190711
  Serious: Yes (Other)
  Sender: FDA-Public Use
  Company Number: CA-GLAXOSMITHKLINE-CA2019GSK076151

PATIENT
  Age: 61 Year
  Sex: Male

DRUGS (4)
  1. SPIRIVA [Suspect]
     Active Substance: TIOTROPIUM BROMIDE MONOHYDRATE
     Indication: ASTHMA
     Dosage: 1 DF, UNK, 1 EVERY 24 HOUR(S)
  2. PREDNISONE. [Suspect]
     Active Substance: PREDNISONE
     Indication: PRODUCT USED FOR UNKNOWN INDICATION
     Dosage: 5 MG, UNK, 2 EVERY 1 DAY(S)
  3. FLUTICASONE PROPIONATE+SALMETEROL XINAFOATE [Suspect]
     Active Substance: FLUTICASONE PROPIONATE\SALMETEROL XINAFOATE
     Indication: ASTHMA
     Dosage: 3 DF, UNK, 1 EVERY 24 HOUR(S)
  4. SALBUTAMOL [Suspect]
     Active Substance: ALBUTEROL
     Indication: ASTHMA
     Dosage: 15 MG, UNK, 1 EVERY 24 HOUR(S)

REACTIONS (8)
  - Foot deformity [Unknown]
  - Therapeutic product effect decreased [Unknown]
  - Hospitalisation [Unknown]
  - Wheezing [Unknown]
  - Bone deformity [Unknown]
  - Polyarthritis [Unknown]
  - Asthma [Unknown]
  - Blood test abnormal [Unknown]
